FAERS Safety Report 13009114 (Version 1)
Quarter: 2016Q4

REPORT INFORMATION
  Report Type: Report from Study
  Country: US (occurrence: US)
  Receive Date: 20161208
  Receipt Date: 20161208
  Transmission Date: 20170207
  Serious: Yes (Hospitalization, Disabling, Other)
  Sender: FDA-Public Use
  Company Number: US-GILEAD-2016-0247288

PATIENT
  Age: 90 Year
  Sex: Male

DRUGS (1)
  1. RANOLAZINE [Suspect]
     Active Substance: RANOLAZINE
     Indication: ANGINA PECTORIS
     Dosage: 500 MG, UNK
     Route: 048

REACTIONS (5)
  - Cardiac disorder [Unknown]
  - Diarrhoea [Unknown]
  - Intestinal obstruction [Unknown]
  - Vomiting [Unknown]
  - Unevaluable event [Not Recovered/Not Resolved]
